FAERS Safety Report 25390719 (Version 2)
Quarter: 2025Q2

REPORT INFORMATION
  Report Type: Spontaneous
  Country: PT (occurrence: PT)
  Receive Date: 20250603
  Receipt Date: 20250609
  Transmission Date: 20250717
  Serious: No
  Sender: NOVARTIS
  Company Number: PT-002147023-NVSC2025PT085388

PATIENT
  Age: 0 Year
  Weight: 2.7 kg

DRUGS (4)
  1. KESIMPTA [Suspect]
     Active Substance: OFATUMUMAB
     Indication: Foetal exposure during pregnancy
     Route: 065
  2. KESIMPTA [Suspect]
     Active Substance: OFATUMUMAB
     Route: 065
  3. HUMAN HEPATITIS B VIRUS IMMUNE GLOBULIN [Concomitant]
     Active Substance: HUMAN HEPATITIS B VIRUS IMMUNE GLOBULIN
     Indication: Product used for unknown indication
     Route: 065
     Dates: start: 20250225
  4. NIRSEVIMAB [Concomitant]
     Active Substance: NIRSEVIMAB
     Indication: Product used for unknown indication
     Route: 065
     Dates: start: 20250224

REACTIONS (2)
  - Normal newborn [Unknown]
  - Foetal exposure during pregnancy [Unknown]

NARRATIVE: CASE EVENT DATE: 20250224
